FAERS Safety Report 20954185 (Version 1)
Quarter: 2022Q2

REPORT INFORMATION
  Report Type: Spontaneous
  Country: US (occurrence: US)
  Receive Date: 20220614
  Receipt Date: 20220614
  Transmission Date: 20220721
  Serious: No
  Sender: FDA-Public Use
  Company Number: US-TEVA-2022-US-2039687

PATIENT
  Sex: Female

DRUGS (3)
  1. ADIPEX-P [Suspect]
     Active Substance: PHENTERMINE HYDROCHLORIDE
     Indication: Weight control
     Dosage: 37.5 MILLIGRAM DAILY; 4 MONTHS
     Route: 065
     Dates: start: 2019
  2. ADIPEX-P [Suspect]
     Active Substance: PHENTERMINE HYDROCHLORIDE
     Dosage: 37.5 MILLIGRAM DAILY;
     Dates: start: 20220518
  3. PHENTERMINE [Suspect]
     Active Substance: PHENTERMINE
     Route: 065

REACTIONS (4)
  - Allergic reaction to excipient [Unknown]
  - Therapeutic response unexpected [Unknown]
  - Product use complaint [Unknown]
  - Stress at work [Unknown]
